FAERS Safety Report 9007553 (Version 1)
Quarter: 2013Q1

REPORT INFORMATION
  Report Type: Spontaneous
  Country: US (occurrence: US)
  Receive Date: 20130111
  Receipt Date: 20130111
  Transmission Date: 20140127
  Serious: Yes (Hospitalization, Other)
  Sender: FDA-Public Use
  Company Number: US-009507513-0911USA00585

PATIENT
  Sex: Male
  Weight: 19.96 kg

DRUGS (1)
  1. SINGULAIR [Suspect]
     Indication: ASTHMA
     Dosage: 4 MG, QD
     Route: 048
     Dates: start: 20020801, end: 20090406

REACTIONS (9)
  - Sleep terror [Unknown]
  - Syncope [Unknown]
  - Mood swings [Unknown]
  - Abdominal pain upper [Unknown]
  - Aggression [Unknown]
  - Agitation [Unknown]
  - Headache [Unknown]
  - Irritability [Unknown]
  - Palpitations [Unknown]
